FAERS Safety Report 22121648 (Version 1)
Quarter: 2023Q1

REPORT INFORMATION
  Report Type: Spontaneous
  Country: HR (occurrence: HR)
  Receive Date: 20230321
  Receipt Date: 20230321
  Transmission Date: 20230417
  Serious: Yes (Other)
  Sender: FDA-Public Use
  Company Number: HR-ABBVIE-4698686

PATIENT
  Age: 69 Year
  Sex: Female

DRUGS (1)
  1. VENETOCLAX [Suspect]
     Active Substance: VENETOCLAX
     Indication: Chronic lymphocytic leukaemia
     Route: 048
     Dates: start: 202207

REACTIONS (3)
  - Herpes zoster [Unknown]
  - Chronic lymphocytic leukaemia [Unknown]
  - Pneumonia [Unknown]

NARRATIVE: CASE EVENT DATE: 20220801
